FAERS Safety Report 6760732-7 (Version None)
Quarter: 2010Q2

REPORT INFORMATION
  Report Type: 
  Country: None (occurrence: None)
  Receive Date: 20100608
  Receipt Date: 20100527
  Transmission Date: 20101027
  Serious: Yes (Other)
  Sender: FDA-Public Use
  Company Number: US-CUBIST-2010S1000385

PATIENT
  Age: 55 Year
  Sex: Female

DRUGS (1)
  1. CUBICIN [Suspect]
     Indication: SECONDARY PROGRESSIVE MULTIPLE SCLEROSIS
     Route: 042

REACTIONS (5)
  - CONVULSION [None]
  - GAIT DISTURBANCE [None]
  - MENTAL STATUS CHANGES [None]
  - MUSCLE SPASMS [None]
  - VISUAL ACUITY REDUCED [None]
